FAERS Safety Report 21184566 (Version 2)
Quarter: 2023Q2

REPORT INFORMATION
  Report Type: Report from Study
  Country: US (occurrence: US)
  Receive Date: 20220808
  Receipt Date: 20230531
  Transmission Date: 20230721
  Serious: Yes (Other)
  Sender: FDA-Public Use
  Company Number: US-2022-ARGX-US000974

PATIENT
  Age: 68 Year
  Sex: Female
  Weight: 106.65 kg

DRUGS (1)
  1. VYVGART [Suspect]
     Active Substance: EFGARTIGIMOD ALFA-FCAB
     Indication: Myasthenia gravis
     Dosage: 10 MG/KG

REACTIONS (8)
  - Oropharyngeal pain [Unknown]
  - Oral candidiasis [Unknown]
  - Pharyngeal swelling [Unknown]
  - Pyrexia [Unknown]
  - Abdominal pain upper [Unknown]
  - Regurgitation [Unknown]
  - Dyspnoea [Unknown]
  - Haemoptysis [Unknown]

NARRATIVE: CASE EVENT DATE: 20220610
